FAERS Safety Report 20975193 (Version 3)
Quarter: 2022Q3

REPORT INFORMATION
  Report Type: Spontaneous
  Country: US (occurrence: US)
  Receive Date: 20220617
  Receipt Date: 20220920
  Transmission Date: 20221026
  Serious: Yes (Other)
  Sender: FDA-Public Use
  Company Number: US-BRISTOL-MYERS SQUIBB COMPANY-2022-021014

PATIENT
  Age: 71 Year
  Sex: Female

DRUGS (3)
  1. REVLIMID [Suspect]
     Active Substance: LENALIDOMIDE
     Indication: Plasma cell myeloma
     Route: 048
     Dates: start: 20201021
  2. REVLIMID [Suspect]
     Active Substance: LENALIDOMIDE
     Route: 048
     Dates: start: 20201021
  3. REVLIMID [Suspect]
     Active Substance: LENALIDOMIDE
     Dosage: FOR 28DAYS
     Route: 048
     Dates: start: 20201021

REACTIONS (4)
  - White blood cell count decreased [Unknown]
  - Platelet count decreased [Unknown]
  - Neutropenia [Unknown]
  - Off label use [Unknown]
